FAERS Safety Report 23627162 (Version 1)
Quarter: 2024Q1

REPORT INFORMATION
  Report Type: Spontaneous
  Country: US (occurrence: None)
  Receive Date: 20240312
  Receipt Date: 20240312
  Transmission Date: 20240410
  Serious: Yes (Hospitalization)
  Sender: FDA-Public Use
  Company Number: None

PATIENT
  Age: 61 Year
  Sex: Male
  Weight: 104.8 kg

DRUGS (9)
  1. VENETOCLAX [Suspect]
     Active Substance: VENETOCLAX
     Indication: Mantle cell lymphoma
  2. allopurinol 300 mg tablet by mouth [Concomitant]
     Dates: start: 20240212
  3. ascorbic acid 500 mg by mouth [Concomitant]
  4. aspirin 81 mg EC by mouth [Concomitant]
  5. evolocumab 140 mg/mL SubQ every 2 weeks [Concomitant]
     Dates: start: 20230822
  6. ferrous SULFATE 325 mg/65 mg elemental iron by mouth [Concomitant]
     Dates: start: 20240306
  7. levoFLOXacin 750 mg by mouth daily x 10 days [Concomitant]
     Dates: start: 20240312
  8. tamsulosin 0.4 mg by mouth daily [Concomitant]
     Dates: start: 20231011
  9. Xarelto 20 mg by mouth [Concomitant]
     Dates: start: 20230822

REACTIONS (3)
  - Hypercalcaemia [None]
  - Blood creatinine increased [None]
  - Therapy interrupted [None]

NARRATIVE: CASE EVENT DATE: 20240312
